FAERS Safety Report 13788481 (Version 1)
Quarter: 2017Q3

REPORT INFORMATION
  Report Type: Spontaneous
  Country: US (occurrence: US)
  Receive Date: 20170725
  Receipt Date: 20170725
  Transmission Date: 20171127
  Serious: No
  Sender: FDA-Public Use
  Company Number: US-JNJFOC-20170625210

PATIENT
  Age: 79 Year
  Sex: Female
  Weight: 57 kg

DRUGS (9)
  1. ALLOPURINOL. [Concomitant]
     Active Substance: ALLOPURINOL
  2. CHONDROITIN SULFATE W/GLUCOSAMINE SULFATE [Concomitant]
  3. CALCIUM ACETATE. [Concomitant]
     Active Substance: CALCIUM ACETATE
  4. MULTIVITAMINS [Concomitant]
     Active Substance: VITAMINS
  5. VITAMIN B COMPLEX [Concomitant]
     Active Substance: CYANOCOBALAMIN\DEXPANTHENOL\NIACINAMIDE\PYRIDOXINE HYDROCHLORIDE\RIBOFLAVIN 5^-PHOSPHATE SODIUM\THIAMINE HYDROCHLORIDE\VITAMIN B COMPLEX
  6. IMBRUVICA [Suspect]
     Active Substance: IBRUTINIB
     Indication: PRODUCT USED FOR UNKNOWN INDICATION
     Route: 048
     Dates: start: 20161012
  7. VITAMIN C [Concomitant]
     Active Substance: ASCORBIC ACID
  8. ASPIRIN. [Concomitant]
     Active Substance: ASPIRIN
  9. VITAMIN E NOS [Concomitant]
     Active Substance: .ALPHA.-TOCOPHEROL

REACTIONS (1)
  - Nail growth abnormal [Not Recovered/Not Resolved]

NARRATIVE: CASE EVENT DATE: 201705
